FAERS Safety Report 4324489-1 (Version None)
Quarter: 2004Q1

REPORT INFORMATION
  Report Type: 
  Country: None (occurrence: None)
  Receive Date: 20040326
  Receipt Date: 20040220
  Transmission Date: 20041129
  Serious: Yes (Hospitalization)
  Sender: FDA-Public Use
  Company Number: US-GLAXOSMITHKLINE-A0499192A

PATIENT
  Age: 79 Year
  Sex: Female

DRUGS (5)
  1. ADVAIR DISKUS 100/50 [Suspect]
     Indication: ASTHMA
     Dosage: 1PUFF TWICE PER DAY
     Route: 055
     Dates: start: 20010501
  2. EVISTA [Concomitant]
  3. VITAMIN CAP [Concomitant]
  4. CALCIUM [Concomitant]
  5. VIT E [Concomitant]

REACTIONS (2)
  - CHOKING [None]
  - PNEUMONIA [None]
